FAERS Safety Report 25787578 (Version 1)
Quarter: 2025Q3

REPORT INFORMATION
  Report Type: Spontaneous
  Country: US (occurrence: US)
  Receive Date: 20250910
  Receipt Date: 20250910
  Transmission Date: 20251020
  Serious: No
  Sender: DOMPE FARMACEUTICI
  Company Number: US-FARMAPROD-202409-3275

PATIENT
  Sex: Male

DRUGS (5)
  1. OXERVATE [Suspect]
     Active Substance: CENEGERMIN-BKBJ
     Indication: Neurotrophic keratopathy
     Route: 047
     Dates: start: 20240701
  2. VITAMINS [Concomitant]
     Active Substance: VITAMINS
  3. TRADJENTA [Concomitant]
     Active Substance: LINAGLIPTIN
  4. GABAPENTIN [Concomitant]
     Active Substance: GABAPENTIN
  5. TOPROL XL [Concomitant]
     Active Substance: METOPROLOL SUCCINATE

REACTIONS (1)
  - Therapy interrupted [Unknown]
